FAERS Safety Report 22979793 (Version 2)
Quarter: 2023Q4

REPORT INFORMATION
  Report Type: Spontaneous
  Country: US (occurrence: US)
  Receive Date: 20230925
  Receipt Date: 20231115
  Transmission Date: 20240109
  Serious: No
  Sender: FDA-Public Use
  Company Number: US-PFIZER INC-PV202300159286

PATIENT
  Age: 72 Year
  Sex: Male
  Weight: 79.773 kg

DRUGS (2)
  1. TALZENNA [Suspect]
     Active Substance: TALAZOPARIB TOSYLATE
     Indication: Prostate cancer
     Dosage: 1 MG, DAILY
     Route: 048
  2. XTANDI [Concomitant]
     Active Substance: ENZALUTAMIDE
     Dosage: UNK

REACTIONS (3)
  - Feeling abnormal [Unknown]
  - Fatigue [Unknown]
  - Neoplasm progression [Unknown]
